FAERS Safety Report 4458116-X (Version None)
Quarter: 2004Q3

REPORT INFORMATION
  Report Type: 
  Country: None (occurrence: None)
  Receive Date: 20040924
  Receipt Date: 20040602
  Transmission Date: 20050211
  Serious: Yes (Hospitalization, Disabling)
  Sender: FDA-Public Use
  Company Number: US-GLAXOSMITHKLINE-A0513410A

PATIENT
  Age: 79 Year
  Sex: Female
  Weight: 73.2 kg

DRUGS (6)
  1. PAXIL [Suspect]
     Indication: ANXIETY
     Dosage: 10MG PER DAY
     Route: 048
     Dates: start: 20040201
  2. PAXIL CR [Suspect]
     Indication: ANXIETY
     Dosage: 12.5MG PER DAY
     Route: 048
     Dates: start: 20031001
  3. NORVASC [Concomitant]
     Dosage: 5MG PER DAY
     Dates: start: 19980101
  4. LIPITOR [Concomitant]
     Dates: start: 19981101
  5. MEPROBAMATE [Concomitant]
     Indication: ANXIETY
     Dates: start: 19820101
  6. XANAX [Concomitant]
     Indication: ANXIETY
     Dates: start: 20030501

REACTIONS (5)
  - CEREBRAL HAEMORRHAGE [None]
  - CEREBROVASCULAR ACCIDENT [None]
  - HEMIPARESIS [None]
  - MENTAL STATUS CHANGES [None]
  - SOMNOLENCE [None]
